FAERS Safety Report 8348329-9 (Version None)
Quarter: 2012Q2

REPORT INFORMATION
  Report Type: 
  Country: None (occurrence: None)
  Receive Date: 20120509
  Receipt Date: 20120508
  Transmission Date: 20120825
  Serious: Yes (Hospitalization)
  Sender: FDA-Public Use
  Company Number: US-BRISTOL-MYERS SQUIBB COMPANY-16448748

PATIENT
  Age: 62 Year
  Sex: Male
  Weight: 89 kg

DRUGS (5)
  1. AZITHROMYCIN [Concomitant]
  2. MECLIZINE [Concomitant]
  3. LORAZEPAM [Concomitant]
  4. PREDNISONE TAB [Concomitant]
  5. IPILIMUMAB [Suspect]
     Indication: MALIGNANT MELANOMA
     Dosage: LAST DOSE ON 27DEC2011
     Route: 042
     Dates: start: 20111205, end: 20111227

REACTIONS (1)
  - VESTIBULAR DISORDER [None]
